FAERS Safety Report 4885369-6 (Version None)
Quarter: 2005Q4

REPORT INFORMATION
  Report Type: 
  Country: None (occurrence: None)
  Receive Date: 20051222
  Receipt Date: 20050802
  Transmission Date: 20060501
  Serious: Yes (Other)
  Sender: FDA-Public Use
  Company Number: 413039

PATIENT
  Sex: Male

DRUGS (10)
  1. TICLID [Suspect]
     Indication: CORONARY ANGIOPLASTY
  2. AGGRENOX [Concomitant]
  3. FUROSEMIDE [Concomitant]
  4. LANTUS [Concomitant]
  5. LISINOPRIL [Concomitant]
  6. ZOCOR [Concomitant]
  7. PREVACID [Concomitant]
  8. TOPROL (METOPROLOL TARTRATE) [Concomitant]
  9. TRICOR [Concomitant]
  10. HUMALOG [Concomitant]

REACTIONS (2)
  - DIARRHOEA [None]
  - TRANSAMINASES INCREASED [None]
